FAERS Safety Report 11977098 (Version 1)
Quarter: 2016Q1

REPORT INFORMATION
  Report Type: Spontaneous
  Country: BR (occurrence: BR)
  Receive Date: 20160129
  Receipt Date: 20160129
  Transmission Date: 20160526
  Serious: Yes (Other)
  Sender: FDA-Public Use
  Company Number: BR-PFIZER INC-2016031987

PATIENT
  Age: 42 Year
  Sex: Female
  Weight: 73.8 kg

DRUGS (7)
  1. EMEND (FOSAPREPITANT DIMEGLUMINE) [Suspect]
     Active Substance: FOSAPREPITANT DIMEGLUMINE
     Indication: BREAST CANCER FEMALE
     Dosage: 150 MG, CYCLE 21/21
     Route: 042
     Dates: start: 20151222
  2. PANTOPRAZOLE [Concomitant]
     Active Substance: PANTOPRAZOLE SODIUM
     Dosage: UNK
  3. SYMBICORT [Concomitant]
     Active Substance: BUDESONIDE\FORMOTEROL FUMARATE DIHYDRATE
     Dosage: UNK
  4. ADRIBLASTINA [Suspect]
     Active Substance: DOXORUBICIN HYDROCHLORIDE
     Indication: BREAST CANCER FEMALE
     Dosage: 110.7 MG, CYCLE 21/21
     Route: 042
     Dates: start: 20151222
  5. ALPRAZOLAM. [Concomitant]
     Active Substance: ALPRAZOLAM
     Dosage: UNK
  6. EXODUS /01588502/ [Concomitant]
     Dosage: UNK
  7. ABRILAR /01017802/ [Concomitant]
     Dosage: UNK

REACTIONS (5)
  - Pruritus [Unknown]
  - Vessel puncture site paraesthesia [Unknown]
  - Vein disorder [Recovered/Resolved]
  - Rash [Unknown]
  - Application site oedema [Unknown]

NARRATIVE: CASE EVENT DATE: 20160113
